FAERS Safety Report 7040343 (Version 12)
Quarter: 2012Q4

REPORT INFORMATION
  Report Type: 
  Country: CA (occurrence: CA)
  Receive Date: 20090702
  Receipt Date: 20121031
  Transmission Date: 20130627
  Serious: Yes (Other)
  Sender: FDA-Public Use
  Company Number: PHHY2009CA07431

PATIENT
  Sex: Male

DRUGS (3)
  1. SANDOSTATIN LAR [Suspect]
     Indication: CARCINOID TUMOUR
     Dosage: 30 mg, QMO
     Route: 030
     Dates: start: 20080712
  2. SANDOSTATIN LAR [Suspect]
     Dosage: 30 mg, Every 4 weeks
     Route: 030
  3. SANDOSTATIN LAR [Suspect]
     Dosage: 30 mg, QMO
     Route: 030

REACTIONS (15)
  - Portal vein thrombosis [Unknown]
  - Joint stiffness [Unknown]
  - Activities of daily living impaired [Unknown]
  - Pain [Unknown]
  - Blood pressure systolic increased [Unknown]
  - Fatigue [Unknown]
  - Diarrhoea [Unknown]
  - Injection site haemorrhage [Recovered/Resolved]
  - Flatulence [Unknown]
  - Nightmare [Unknown]
  - Poor quality sleep [Unknown]
  - Arthralgia [Unknown]
  - Injection site discomfort [Unknown]
  - Abdominal distension [Recovering/Resolving]
  - Abdominal pain [Recovering/Resolving]
